FAERS Safety Report 20355515 (Version 1)
Quarter: 2022Q1

REPORT INFORMATION
  Report Type: Spontaneous
  Country: AT (occurrence: AT)
  Receive Date: 20220120
  Receipt Date: 20220120
  Transmission Date: 20220424
  Serious: Yes (Hospitalization)
  Sender: FDA-Public Use
  Company Number: AT-ALNYLAM PHARMACEUTICALS, INC.-ALN-2022-000156

PATIENT

DRUGS (5)
  1. ONPATTRO [Suspect]
     Active Substance: PATISIRAN SODIUM
     Indication: Amyloidosis
     Dosage: 20 MILLIGRAM, Q3W
     Route: 042
     Dates: start: 20190501
  2. ACETAMINOPHEN [Concomitant]
     Active Substance: ACETAMINOPHEN
     Indication: Prophylaxis
     Dosage: 500 MILLIGRAM (1 TABLET), Q3W
  3. DIPHENHYDRAMINE [Concomitant]
     Active Substance: DIPHENHYDRAMINE
     Indication: Prophylaxis
     Dosage: 50 MILLIGRAM (1 COATED TABLET), Q3W
  4. FAMOTIDINE [Concomitant]
     Active Substance: FAMOTIDINE
     Indication: Prophylaxis
     Dosage: 20 MILLIGRAM (21/2 TABLETS), Q3W
  5. PREDNISONE [Concomitant]
     Active Substance: PREDNISONE
     Indication: Prophylaxis
     Dosage: 1 TABLET, Q3W

REACTIONS (2)
  - COVID-19 [Recovering/Resolving]
  - Product dose omission issue [Unknown]
